FAERS Safety Report 15269546 (Version 2)
Quarter: 2018Q3

REPORT INFORMATION
  Report Type: Spontaneous
  Country: US (occurrence: US)
  Receive Date: 20180813
  Receipt Date: 20180816
  Transmission Date: 20181010
  Serious: No
  Sender: FDA-Public Use
  Company Number: PHEH2018US031963

PATIENT
  Sex: Male

DRUGS (1)
  1. TASIGNA [Suspect]
     Active Substance: NILOTINIB
     Indication: PRODUCT USED FOR UNKNOWN INDICATION
     Dosage: UNK
     Route: 048
     Dates: start: 2012

REACTIONS (5)
  - Constipation [Unknown]
  - Diarrhoea [Unknown]
  - Eating disorder [Unknown]
  - Rhinorrhoea [Unknown]
  - Inappropriate schedule of drug administration [Unknown]
